FAERS Safety Report 12325993 (Version 2)
Quarter: 2016Q2

REPORT INFORMATION
  Report Type: Spontaneous
  Country: JP (occurrence: JP)
  Receive Date: 20160503
  Receipt Date: 20160519
  Transmission Date: 20160815
  Serious: Yes (Other)
  Sender: FDA-Public Use
  Company Number: JP-009507513-1604JPN001292

PATIENT
  Age: 34 Year
  Sex: Female
  Weight: 44 kg

DRUGS (5)
  1. REMERON [Suspect]
     Active Substance: MIRTAZAPINE
     Indication: DEPRESSION
     Dosage: 15 MG, ONCE DAILY
     Route: 048
     Dates: start: 20150803, end: 20151110
  2. REMERON [Suspect]
     Active Substance: MIRTAZAPINE
     Dosage: 45 MG, ONCE DAILY
     Route: 048
     Dates: start: 20160223, end: 20160330
  3. REMERON [Suspect]
     Active Substance: MIRTAZAPINE
     Dosage: 30 MG, ONCE DAILY
     Route: 048
     Dates: start: 20160331
  4. REMERON [Suspect]
     Active Substance: MIRTAZAPINE
     Dosage: 30 MG, ONCE DAILY
     Route: 048
     Dates: start: 20151111, end: 20160222
  5. WYPAX [Concomitant]
     Active Substance: LORAZEPAM
     Indication: ANXIETY
     Dosage: 0.5MG ONCE A DAY, AS NEEDED WHEN FEELING ANXIOUS
     Route: 048
     Dates: start: 20150909

REACTIONS (6)
  - Generalised tonic-clonic seizure [Recovered/Resolved]
  - Generalised tonic-clonic seizure [Recovered/Resolved]
  - Contusion [Unknown]
  - Electroencephalogram abnormal [Unknown]
  - Tongue biting [Unknown]
  - Depression [Unknown]

NARRATIVE: CASE EVENT DATE: 201602
